FAERS Safety Report 5389657-9 (Version None)
Quarter: 2007Q3

REPORT INFORMATION
  Report Type: 
  Country: None (occurrence: None)
  Receive Date: 20070717
  Receipt Date: 20070711
  Transmission Date: 20080115
  Serious: Yes (Life-Threatening, Hospitalization)
  Sender: FDA-Public Use
  Company Number: CN-SHR-CN-2007-026130

PATIENT
  Age: 67 Year
  Sex: Female

DRUGS (3)
  1. ULTRAVIST (PHARMACY BULK) [Suspect]
     Dosage: 80 ML, 1 DOSE
     Route: 042
     Dates: start: 20070122, end: 20070122
  2. ENOXAPARIN SODIUM [Concomitant]
     Dosage: 40 MG VERSUS PLACEBO
     Route: 058
     Dates: start: 20061217, end: 20061217
  3. ENOXAPARIN SODIUM [Concomitant]
     Dosage: 40 MG, 1X/DAY
     Route: 058
     Dates: start: 20061218, end: 20061228

REACTIONS (6)
  - ANAPHYLACTIC SHOCK [None]
  - BLOOD PRESSURE IMMEASURABLE [None]
  - CHEST DISCOMFORT [None]
  - HYPERHIDROSIS [None]
  - NAUSEA [None]
  - VOMITING [None]
